FAERS Safety Report 9395530 (Version 4)
Quarter: 2013Q4

REPORT INFORMATION
  Report Type: Spontaneous
  Country: US (occurrence: US)
  Receive Date: 20130711
  Receipt Date: 20131202
  Transmission Date: 20140711
  Serious: Yes (Hospitalization)
  Sender: FDA-Public Use
  Company Number: US-BAYER-2013-082483

PATIENT
  Age: 71 Year
  Sex: Female
  Weight: 77.1 kg

DRUGS (4)
  1. ALEVE CAPLET [Suspect]
     Indication: BACK PAIN
     Dosage: 1-2 DF, QD
     Route: 048
     Dates: start: 20130520, end: 20130523
  2. ALEVE CAPLET [Suspect]
     Indication: PAIN IN EXTREMITY
  3. EPINEPHRINE [Concomitant]
  4. ADVIL [Suspect]
     Dosage: UNK
     Dates: start: 201305

REACTIONS (10)
  - Small intestinal ulcer haemorrhage [Recovered/Resolved]
  - Gastrointestinal haemorrhage [Recovered/Resolved]
  - Gastrointestinal haemorrhage [None]
  - Gastric haemorrhage [None]
  - Intestinal ulcer [None]
  - Melaena [Recovered/Resolved]
  - Faeces discoloured [Recovered/Resolved]
  - Haemoglobin decreased [None]
  - Asthenia [None]
  - Haematochezia [Recovered/Resolved]
